FAERS Safety Report 4357621-4 (Version None)
Quarter: 2004Q2

REPORT INFORMATION
  Report Type: 
  Country: None (occurrence: None)
  Receive Date: 20040510
  Receipt Date: 20040423
  Transmission Date: 20050107
  Serious: Yes (Other)
  Sender: FDA-Public Use
  Company Number: 231966K04USA

PATIENT
  Age: 41 Year
  Sex: Male

DRUGS (2)
  1. REBIF [Suspect]
     Indication: MULTIPLE SCLEROSIS
     Dosage: INTRAVENOUS
     Route: 042
  2. METHYLPREDNISOLONE SODIUM SUCCINATE [Concomitant]

REACTIONS (5)
  - DYSPNOEA [None]
  - MUSCULOSKELETAL STIFFNESS [None]
  - PAIN IN EXTREMITY [None]
  - PALPITATIONS [None]
  - PROCEDURAL COMPLICATION [None]
